FAERS Safety Report 9070993 (Version 1)
Quarter: 2013Q1

REPORT INFORMATION
  Report Type: Spontaneous
  Country: FR (occurrence: FR)
  Receive Date: 20130129
  Receipt Date: 20130129
  Transmission Date: 20140127
  Serious: Yes (Hospitalization)
  Sender: FDA-Public Use
  Company Number: FR-GLAXOSMITHKLINE-B0861479A

PATIENT
  Age: 42 None
  Sex: Female

DRUGS (6)
  1. ZELITREX [Suspect]
     Indication: HERPES VIRUS INFECTION
     Route: 065
     Dates: start: 20121128
  2. ISOPTINE [Suspect]
     Indication: PRODUCT USED FOR UNKNOWN INDICATION
     Dosage: 240MG UNKNOWN
     Route: 048
     Dates: start: 20121122, end: 20121204
  3. SERETIDE [Concomitant]
     Indication: ASTHMA
  4. VENTOLINE [Concomitant]
     Indication: ASTHMA
  5. MONOTILDIEM [Concomitant]
  6. BRICANYL [Concomitant]
     Indication: ASTHMA
     Dates: start: 20121128

REACTIONS (7)
  - Rash maculo-papular [Recovered/Resolved]
  - Asthma [Recovered/Resolved]
  - Pyrexia [Recovered/Resolved]
  - Lymphopenia [Unknown]
  - Purpura [Recovered/Resolved]
  - Face oedema [Recovered/Resolved]
  - Lymphadenopathy [Recovered/Resolved]
